FAERS Safety Report 9623963 (Version 1)
Quarter: 2013Q4

REPORT INFORMATION
  Report Type: Spontaneous
  Country: SE (occurrence: None)
  Receive Date: 20131010
  Receipt Date: 20131010
  Transmission Date: 20140711
  Serious: Yes (Other)
  Sender: FDA-Public Use
  Company Number: SE-SEPTODONT-201301533

PATIENT
  Age: 50 Year
  Sex: Female

DRUGS (1)
  1. SEPTOCAINE [Suspect]
     Indication: LOCAL ANAESTHESIA
     Dosage: 40 MG/ML +5ML SOLUTION FOR INJECTION
     Route: 004
     Dates: start: 20130701, end: 20130701

REACTIONS (5)
  - Haematoma [None]
  - Trismus [None]
  - Hypersensitivity [None]
  - Hypoaesthesia oral [None]
  - Paraesthesia [None]
